FAERS Safety Report 5750858-9 (Version None)
Quarter: 2008Q2

REPORT INFORMATION
  Report Type: 
  Country: None (occurrence: None)
  Receive Date: 20080528
  Receipt Date: 20080522
  Transmission Date: 20081010
  Serious: Yes (Other)
  Sender: FDA-Public Use
  Company Number: B0522444A

PATIENT
  Age: 46 Year
  Sex: Male

DRUGS (3)
  1. HEPTODIN [Suspect]
     Indication: HEPATIC CIRRHOSIS
     Dosage: 100MG PER DAY
     Route: 048
     Dates: start: 20061201
  2. ANTIBIOTIC [Concomitant]
  3. CHINESE TRADITIONAL MEDICATION [Concomitant]

REACTIONS (4)
  - LEUKOPENIA [None]
  - PLATELET COUNT DECREASED [None]
  - THROMBOCYTOPENIA [None]
  - WHITE BLOOD CELL COUNT DECREASED [None]
